FAERS Safety Report 9008930 (Version 2)
Quarter: 2013Q1

REPORT INFORMATION
  Report Type: Spontaneous
  Country: US (occurrence: US)
  Receive Date: 20130109
  Receipt Date: 20130109
  Transmission Date: 20140127
  Serious: No
  Sender: FDA-Public Use
  Company Number: US-ASTRAZENECA-2012SE94304

PATIENT
  Age: 67 Year
  Sex: Female
  Weight: 95.7 kg

DRUGS (10)
  1. FELODIPINE [Suspect]
     Route: 048
     Dates: start: 2005
  2. SEROQUEL XR [Suspect]
     Indication: DEPRESSION
     Route: 048
     Dates: start: 2010, end: 201201
  3. LEVOTHYROXINE [Concomitant]
     Dates: start: 2002
  4. NARDIL [Concomitant]
     Dates: start: 2009
  5. ATIVAN [Concomitant]
     Dates: start: 2009
  6. ULTRAM [Concomitant]
     Dates: start: 201211
  7. NEUROTONIN [Concomitant]
     Dates: start: 201211
  8. ASPIRIN [Concomitant]
     Dates: start: 2011
  9. VITAMIN D [Concomitant]
     Dates: start: 2011
  10. OMEGA 3 [Concomitant]
     Dates: start: 2011

REACTIONS (10)
  - Neuropathy peripheral [Not Recovered/Not Resolved]
  - Pain in extremity [Not Recovered/Not Resolved]
  - Weight decreased [Not Recovered/Not Resolved]
  - Glucose tolerance impaired [Unknown]
  - Gait disturbance [Unknown]
  - Sleep apnoea syndrome [Unknown]
  - Dry mouth [Not Recovered/Not Resolved]
  - Lip swelling [Not Recovered/Not Resolved]
  - Local swelling [Not Recovered/Not Resolved]
  - Therapeutic response unexpected [Unknown]
